FAERS Safety Report 8847293 (Version 3)
Quarter: 2013Q3

REPORT INFORMATION
  Report Type: Spontaneous
  Country: US (occurrence: US)
  Receive Date: 20121018
  Receipt Date: 20130712
  Transmission Date: 20140515
  Serious: No
  Sender: FDA-Public Use
  Company Number: US-ASTRAZENECA-2012SE78737

PATIENT
  Age: 67 Year
  Sex: Female

DRUGS (10)
  1. PULMICORT [Suspect]
     Indication: CHRONIC OBSTRUCTIVE PULMONARY DISEASE
     Route: 055
  2. PULMICORT [Suspect]
     Indication: ASTHMA
     Route: 055
  3. PULMICORT [Suspect]
     Indication: BRONCHITIS CHRONIC
     Route: 055
  4. PULMICORT [Suspect]
     Indication: CHRONIC OBSTRUCTIVE PULMONARY DISEASE
     Route: 055
  5. PULMICORT [Suspect]
     Indication: ASTHMA
     Route: 055
  6. PULMICORT [Suspect]
     Indication: BRONCHITIS CHRONIC
     Route: 055
  7. PULMICORT [Suspect]
     Indication: CHRONIC OBSTRUCTIVE PULMONARY DISEASE
     Dosage: TWO TIMES DAILY
     Route: 055
  8. PULMICORT [Suspect]
     Indication: ASTHMA
     Dosage: TWO TIMES DAILY
     Route: 055
  9. PULMICORT [Suspect]
     Indication: BRONCHITIS CHRONIC
     Dosage: TWO TIMES DAILY
     Route: 055
  10. SYMBICORT [Suspect]
     Dosage: UNKNOWN
     Route: 055

REACTIONS (3)
  - Influenza [Unknown]
  - Off label use [Unknown]
  - Drug ineffective for unapproved indication [Unknown]
